FAERS Safety Report 9938605 (Version 1)
Quarter: 2014Q1

REPORT INFORMATION
  Report Type: Spontaneous
  Country: US (occurrence: US)
  Receive Date: 20140303
  Receipt Date: 20140303
  Transmission Date: 20141002
  Serious: Yes (Other)
  Sender: FDA-Public Use
  Company Number: US-SA-2014SA024332

PATIENT
  Age: 77 Year
  Sex: Female

DRUGS (2)
  1. LANTUS SOLOSTAR [Suspect]
     Indication: TYPE 2 DIABETES MELLITUS
     Dosage: DOSE:-40 UNIT IN MORNING AND 26 UNITS IN EVENING
     Route: 058
     Dates: start: 2010
  2. SOLOSTAR [Concomitant]
     Indication: TYPE 2 DIABETES MELLITUS
     Dates: start: 2010

REACTIONS (3)
  - Basal cell carcinoma [Unknown]
  - Visual impairment [Unknown]
  - Hypokinesia [Unknown]
